FAERS Safety Report 5062317-X (Version None)
Quarter: 2006Q3

REPORT INFORMATION
  Report Type: 
  Country: None (occurrence: None)
  Receive Date: 20060721
  Receipt Date: 20060704
  Transmission Date: 20061208
  Serious: Yes (Hospitalization)
  Sender: FDA-Public Use
  Company Number: FR200607000288

PATIENT
  Age: 76 Year
  Sex: Female

DRUGS (12)
  1. FORTEO [Suspect]
     Indication: OSTEOPOROSIS
     Dosage: 20 UG, DAILY (1/D), SUBCUTANEOUS
     Route: 058
     Dates: start: 20060113
  2. FORTEO [Concomitant]
  3. CORDARONE (AMODARONE HYDROCHLORIDE) [Concomitant]
  4. BISOPROLOL FUMARATE [Concomitant]
  5. PREVISCAN (FLUINDIONE) [Concomitant]
  6. METHOTREXATE [Concomitant]
  7. DIFRAREL (BETACAROTENE, MYRTILLUS) [Concomitant]
  8. DAFLON (DOSMIN) [Concomitant]
  9. SPECIAFOLDINE (FOLIC ACID) [Concomitant]
  10. DURAGESIC-100 [Concomitant]
  11. MORPHINE SULFATE [Concomitant]
  12. ACETAMINOPHEN [Concomitant]

REACTIONS (1)
  - LUNG INFECTION [None]
